FAERS Safety Report 10507876 (Version 1)
Quarter: 2014Q3

REPORT INFORMATION
  Report Type: Spontaneous
  Country: US (occurrence: None)
  Receive Date: 20140915
  Receipt Date: 20140915
  Transmission Date: 20150326
  Serious: Yes (Other)
  Sender: FDA-Public Use
  Company Number: JPI-P-034545

PATIENT
  Age: 49 Year
  Sex: Male
  Weight: 68.6 kg

DRUGS (4)
  1. XYREM [Suspect]
     Active Substance: SODIUM OXYBATE
     Indication: SOMNOLENCE
     Dosage: UKNOWN, SINGLE, ORAL
     Route: 048
     Dates: start: 201212
  2. ATENOLOL. [Concomitant]
     Active Substance: ATENOLOL
  3. XYREM [Suspect]
     Active Substance: SODIUM OXYBATE
     Indication: NARCOLEPSY
     Dosage: UKNOWN, SINGLE, ORAL
     Route: 048
     Dates: start: 201212
  4. AMPHETAMINE, DEXTROAMPHETAMINE MISED SALTS [Concomitant]

REACTIONS (4)
  - Condition aggravated [None]
  - Abdominal discomfort [None]
  - Inappropriate schedule of drug administration [None]
  - Blood pressure increased [None]
